FAERS Safety Report 8036431-0 (Version None)
Quarter: 2012Q1

REPORT INFORMATION
  Report Type: 
  Country: None (occurrence: None)
  Receive Date: 20120111
  Receipt Date: 20120104
  Transmission Date: 20120608
  Serious: Yes (Hospitalization)
  Sender: FDA-Public Use
  Company Number: DE-B.I. PHARMACEUTICALS,INC./RIDGEFIELD-2011-DE-06918DE

PATIENT
  Age: 66 Year
  Sex: Male
  Weight: 71 kg

DRUGS (9)
  1. FLECAINID [Concomitant]
  2. CALCIMAGOL [Concomitant]
  3. BAYOTENSIN [Concomitant]
  4. PRADAXA [Suspect]
     Indication: ATRIAL FIBRILLATION
     Dosage: 300 MG
     Dates: start: 20110901
  5. METOPROLOL SUCCINATE [Concomitant]
  6. TAMSUCO [Concomitant]
  7. TAMSULOSIN HCL [Concomitant]
  8. VALSARTAN [Concomitant]
  9. THROMCARDIN [Concomitant]

REACTIONS (2)
  - BLOOD PRESSURE FLUCTUATION [None]
  - BLOOD PRESSURE INCREASED [None]
